FAERS Safety Report 26052634 (Version 1)
Quarter: 2025Q4

REPORT INFORMATION
  Report Type: Spontaneous
  Country: US (occurrence: US)
  Receive Date: 20251117
  Receipt Date: 20251117
  Transmission Date: 20260119
  Serious: Yes (Life-Threatening, Hospitalization)
  Sender: BANNER
  Company Number: None

PATIENT
  Age: 17 Year
  Sex: Female

DRUGS (2)
  1. IBUPROFEN [Suspect]
     Active Substance: IBUPROFEN
     Indication: Tooth abscess
     Dosage: SHE HAD INGESTED AN UNCLEAR AMOUNT OF ACETAMINOPHEN AND IBUPROFEN OVER SEVERAL DAYS
     Route: 048
  2. ACETAMINOPHEN [Suspect]
     Active Substance: ACETAMINOPHEN
     Indication: Tooth abscess
     Dosage: SHE HAD INGESTED AN UNCLEAR AMOUNT OF ACETAMINOPHEN AND IBUPROFEN OVER SEVERAL DAYS
     Route: 048

REACTIONS (4)
  - Acute hepatic failure [Recovering/Resolving]
  - Acute kidney injury [Recovering/Resolving]
  - Intentional overdose [Recovering/Resolving]
  - Toxicity to various agents [Recovering/Resolving]
